FAERS Safety Report 20870871 (Version 2)
Quarter: 2022Q3

REPORT INFORMATION
  Report Type: Spontaneous
  Country: RO (occurrence: RO)
  Receive Date: 20220525
  Receipt Date: 20220726
  Transmission Date: 20221027
  Serious: Yes (Other)
  Sender: FDA-Public Use
  Company Number: RO-SUN PHARMACEUTICAL INDUSTRIES LTD-2022RR-337922

PATIENT
  Age: 46 Year
  Sex: Male

DRUGS (7)
  1. PANTOPRAZOLE [Suspect]
     Active Substance: PANTOPRAZOLE
     Indication: COVID-19
     Dosage: 40 MILLIGRAM, DAILY
     Route: 048
  2. ACETAMINOPHEN [Suspect]
     Active Substance: ACETAMINOPHEN
     Indication: COVID-19
     Dosage: 500 MILLIGRAM, AS NEEDED
     Route: 048
  3. METOCLOPRAMIDE [Suspect]
     Active Substance: METOCLOPRAMIDE
     Indication: COVID-19
     Dosage: UNK
     Route: 065
  4. DEXAMETHASONE [Suspect]
     Active Substance: DEXAMETHASONE
     Indication: COVID-19
     Dosage: 10 MILLIGRAM, BID
  5. ENOXAPARIN SODIUM [Suspect]
     Active Substance: ENOXAPARIN SODIUM
     Indication: COVID-19
     Dosage: 60 MILLIGRAM IN 0.6 ML, DAILY
     Route: 058
  6. METHYLPREDNISOLONE [Suspect]
     Active Substance: METHYLPREDNISOLONE
     Indication: COVID-19
     Dosage: 250 MILLIGRAM, DAILY
     Route: 042
  7. IVERMECTIN [Suspect]
     Active Substance: IVERMECTIN
     Indication: COVID-19
     Dosage: 12 MILLIGRAM, 1 DOSE
     Route: 048

REACTIONS (3)
  - Self-medication [Unknown]
  - Hiccups [Unknown]
  - Off label use [Unknown]
